FAERS Safety Report 9841983 (Version 2)
Quarter: 2014Q1

REPORT INFORMATION
  Report Type: Spontaneous
  Country: US (occurrence: US)
  Receive Date: 20140124
  Receipt Date: 20140124
  Transmission Date: 20141002
  Serious: Yes (Hospitalization, Other)
  Sender: FDA-Public Use
  Company Number: US-009507513-1401USA002130

PATIENT
  Sex: Male

DRUGS (10)
  1. THERAPY UNSPECIFIED [Suspect]
     Indication: HEPATITIS C
     Dosage: INJECTION, QW
     Dates: start: 20080104, end: 20080704
  2. REBETOL [Suspect]
     Indication: HEPATITIS C
     Dosage: 3 PILLS, BID
     Route: 048
     Dates: start: 20090121, end: 20090413
  3. PEGASYS [Suspect]
     Indication: HEPATITIS C
     Dosage: 1 CC , QW
     Route: 058
     Dates: start: 20090121, end: 20090413
  4. ZANTAC [Concomitant]
     Dosage: DOSE ONE DAILY
  5. ATENOLOL [Concomitant]
     Dosage: ONE DAILY
  6. ASPIRIN [Concomitant]
     Dosage: ONE DAILY
  7. SYNTHROID [Concomitant]
     Dosage: ONE DAILY
  8. VITAMIN B COMPLEX [Concomitant]
     Dosage: ONE DAILY
  9. ZYRTEC [Concomitant]
     Dosage: ONE DAILY
  10. ZOCOR [Concomitant]
     Dosage: ONE DAILY

REACTIONS (8)
  - Myocardial infarction [Unknown]
  - Cardiac disorder [Unknown]
  - Vascular graft [Unknown]
  - Aspartate aminotransferase increased [Unknown]
  - Alanine aminotransferase increased [Unknown]
  - Blood count abnormal [Unknown]
  - Platelet count decreased [Unknown]
  - Drug ineffective [Unknown]
